FAERS Safety Report 14700494 (Version 1)
Quarter: 2018Q1

REPORT INFORMATION
  Report Type: Spontaneous
  Country: ES (occurrence: ES)
  Receive Date: 20180330
  Receipt Date: 20180330
  Transmission Date: 20180509
  Serious: Yes (Other)
  Sender: FDA-Public Use
  Company Number: ES-JNJFOC-20180337543

PATIENT
  Age: 83 Year
  Sex: Male

DRUGS (1)
  1. RIVAROXABAN [Suspect]
     Active Substance: RIVAROXABAN
     Indication: PRODUCT USED FOR UNKNOWN INDICATION
     Route: 048

REACTIONS (6)
  - Musculoskeletal pain [Unknown]
  - Limb injury [Unknown]
  - Vascular pseudoaneurysm ruptured [Unknown]
  - Traumatic haematoma [Unknown]
  - Nerve compression [Unknown]
  - Injury [Unknown]
